FAERS Safety Report 9542497 (Version 11)
Quarter: 2015Q4

REPORT INFORMATION
  Report Type: Report from Study
  Country: CA (occurrence: CA)
  Receive Date: 20130923
  Receipt Date: 20151009
  Transmission Date: 20160305
  Serious: No
  Sender: FDA-Public Use
  Company Number: PHHY2013CA078612

PATIENT
  Age: 77 Year
  Sex: Male

DRUGS (7)
  1. OMEGA 3 [Concomitant]
     Active Substance: OMEGA-3 FATTY ACIDS
     Indication: PRODUCT USED FOR UNKNOWN INDICATION
     Route: 065
  2. STATIN [Concomitant]
     Active Substance: UNSPECIFIED INGREDIENT
     Indication: HYPERTENSION
     Route: 065
  3. TASIGNA [Suspect]
     Active Substance: NILOTINIB
     Dosage: 750 MG, DAILY (3DF OF 150 MG IN THE MORNING AND 2 DF OF 150 MG AT NIGHT)
     Route: 048
  4. NATURAL VITAMIN D [Concomitant]
     Indication: PRODUCT USED FOR UNKNOWN INDICATION
     Route: 065
  5. ASPIRIN. [Concomitant]
     Active Substance: ASPIRIN
     Indication: HYPERTENSION
     Route: 065
  6. TASIGNA [Suspect]
     Active Substance: NILOTINIB
     Indication: CHRONIC MYELOID LEUKAEMIA
     Dosage: 300 MG, BID
     Route: 048
     Dates: start: 20130716
  7. TASIGNA [Suspect]
     Active Substance: NILOTINIB
     Dosage: 400 MG,BID
     Route: 048

REACTIONS (9)
  - Heart rate increased [Unknown]
  - Joint swelling [Unknown]
  - Nausea [Unknown]
  - Abdominal pain upper [Unknown]
  - Vomiting [Unknown]
  - Gastroenteritis viral [Unknown]
  - Hypotension [Unknown]
  - Drug ineffective [Unknown]
  - Micturition urgency [Unknown]

NARRATIVE: CASE EVENT DATE: 20130902
